FAERS Safety Report 14030111 (Version 1)
Quarter: 2017Q4

REPORT INFORMATION
  Report Type: Spontaneous
  Country: GB (occurrence: GB)
  Receive Date: 20171001
  Receipt Date: 20171001
  Transmission Date: 20180321
  Serious: Yes (Other)
  Sender: FDA-Public Use
  Company Number: GB-DEXPHARM-20171299

PATIENT
  Sex: Female

DRUGS (2)
  1. OMEPRAZOLE 20 MG GASTRO-RESISTANT CAPSULES [Suspect]
     Active Substance: OMEPRAZOLE
  2. LANSOPRAZOLE. [Suspect]
     Active Substance: LANSOPRAZOLE

REACTIONS (4)
  - Neutropenia [Unknown]
  - Withdrawal syndrome [Unknown]
  - Dry throat [Unknown]
  - Condition aggravated [Unknown]
